FAERS Safety Report 6450589-6 (Version None)
Quarter: 2009Q4

REPORT INFORMATION
  Report Type: 
  Country: None (occurrence: None)
  Receive Date: 20091123
  Receipt Date: 20091114
  Transmission Date: 20100525
  Serious: Yes (Hospitalization, Other)
  Sender: FDA-Public Use
  Company Number: US-AMGEN-QUU374582

PATIENT
  Sex: Male

DRUGS (3)
  1. NEUPOGEN [Suspect]
     Indication: NEUTROPENIA
     Dates: start: 20020101
  2. NEULASTA [Suspect]
     Indication: NEUTROPENIA
     Route: 065
  3. CISPLATIN [Concomitant]
     Dates: start: 20020101

REACTIONS (6)
  - BONE MARROW DISORDER [None]
  - HERPES ZOSTER [None]
  - POST HERPETIC NEURALGIA [None]
  - PSEUDOMONAS INFECTION [None]
  - PYREXIA [None]
  - WHITE BLOOD CELL COUNT DECREASED [None]
